FAERS Safety Report 8402940-5 (Version None)
Quarter: 2012Q2

REPORT INFORMATION
  Report Type: 
  Country: None (occurrence: None)
  Receive Date: 20120601
  Receipt Date: 20120524
  Transmission Date: 20120825
  Serious: Yes (Congenital Anomaly)
  Sender: FDA-Public Use
  Company Number: US-GLAXOSMITHKLINE-A0979567A

PATIENT
  Sex: Female

DRUGS (4)
  1. CARAFATE [Concomitant]
     Route: 064
  2. PAXIL [Suspect]
     Indication: PRODUCT USED FOR UNKNOWN INDICATION
     Dosage: 20MG PER DAY
     Route: 064
  3. MULTI-VITAMINS [Concomitant]
     Route: 064
  4. FIORICET [Concomitant]
     Route: 064

REACTIONS (3)
  - FOETAL EXPOSURE DURING PREGNANCY [None]
  - CLEFT PALATE [None]
  - BICUSPID AORTIC VALVE [None]
